FAERS Safety Report 4616863-0 (Version None)
Quarter: 2005Q1

REPORT INFORMATION
  Report Type: 
  Country: None (occurrence: None)
  Receive Date: 20050321
  Receipt Date: 20040812
  Transmission Date: 20050727
  Serious: Yes (Hospitalization)
  Sender: FDA-Public Use
  Company Number: 8666

PATIENT
  Age: 50 Year
  Sex: Male

DRUGS (3)
  1. FLUOROURACIL [Suspect]
     Indication: COLORECTAL CANCER METASTATIC
     Dosage: 400 MG/M2 2/WK
     Route: 042
     Dates: start: 20040304
  2. LEUCOVORIN CALCIUM [Suspect]
     Indication: COLORECTAL CANCER METASTATIC
     Dosage: 200 MG/M2 2/WK
     Route: 042
     Dates: start: 20040304
  3. OXALIPLATIN [Suspect]
     Indication: COLORECTAL CANCER METASTATIC
     Dosage: 85 MG/M2 WEEKLY
     Route: 042
     Dates: start: 20040304

REACTIONS (4)
  - ABDOMINAL DISCOMFORT [None]
  - BACTERIA STOOL IDENTIFIED [None]
  - CAMPYLOBACTER INFECTION [None]
  - DIARRHOEA [None]
